FAERS Safety Report 12320294 (Version 2)
Quarter: 2016Q2

REPORT INFORMATION
  Report Type: Spontaneous
  Country: GB (occurrence: GB)
  Receive Date: 20160429
  Receipt Date: 20160530
  Transmission Date: 20160815
  Serious: Yes (Disabling, Other)
  Sender: FDA-Public Use
  Company Number: GB-PFIZER INC-2016235947

PATIENT
  Age: 49 Year
  Sex: Female

DRUGS (8)
  1. TAXOL [Concomitant]
     Active Substance: PACLITAXEL
     Dosage: 80MG/M2, OVER 1 HOUR
     Route: 042
     Dates: start: 20160114
  2. IBUPROFEN. [Suspect]
     Active Substance: IBUPROFEN
     Indication: PAIN
     Dosage: UNKNOWN
     Route: 048
     Dates: end: 20151214
  3. DOCETAXEL. [Suspect]
     Active Substance: DOCETAXEL
     Dosage: UNK
  4. MEDAC FLUORACIL [Concomitant]
     Dosage: 500MG/M2 1G/20ML
     Route: 040
     Dates: start: 20151012, end: 20151123
  5. TRASTUZUMAB [Concomitant]
     Active Substance: TRASTUZUMAB
     Dosage: 600MG
     Route: 058
     Dates: start: 20151230
  6. OMEPRAZOLE. [Suspect]
     Active Substance: OMEPRAZOLE
     Dosage: UNK
     Route: 048
     Dates: end: 20151214
  7. CYCLOPHOSPHAMIDE. [Suspect]
     Active Substance: CYCLOPHOSPHAMIDE
     Indication: BREAST CANCER
     Dosage: 500 MG/M2 (1G)
     Route: 040
  8. EPIRUBICIN [Concomitant]
     Active Substance: EPIRUBICIN
     Dosage: 100MG/M2 10MG/5ML
     Route: 040
     Dates: start: 20151123, end: 20160112

REACTIONS (1)
  - Alanine aminotransferase increased [Not Recovered/Not Resolved]

NARRATIVE: CASE EVENT DATE: 20151030
